FAERS Safety Report 8839931 (Version 3)
Quarter: 2015Q3

REPORT INFORMATION
  Report Type: Report from Study
  Country: BR (occurrence: BR)
  Receive Date: 20121015
  Receipt Date: 20150729
  Transmission Date: 20151125
  Serious: Yes (Hospitalization, Other)
  Sender: FDA-Public Use
  Company Number: PHHY2012BR088882

PATIENT
  Sex: Male

DRUGS (4)
  1. RITALIN [Suspect]
     Active Substance: METHYLPHENIDATE HYDROCHLORIDE
     Indication: ATTENTION DEFICIT/HYPERACTIVITY DISORDER
     Dosage: 10 MG (02 TABLETS ON THE BREAKFAST AND 02 TABLETS IN THE AFTERNOON
  2. OLCADIL [Suspect]
     Active Substance: CLOXAZOLAM
     Dosage: 4 MG, UNK
     Route: 065
  3. OLCADIL [Suspect]
     Active Substance: CLOXAZOLAM
     Indication: PRODUCT USED FOR UNKNOWN INDICATION
     Dosage: 04 MG, 02 TABLETS AT BREAKFAST AND 02 TABLETS IN THE AFTERNOON
     Route: 065
  4. RITALIN [Suspect]
     Active Substance: METHYLPHENIDATE HYDROCHLORIDE
     Dosage: 2 DF (2 TABLETS, AFTER WAKING UP AND AT LUNCHTIME)
     Route: 065

REACTIONS (13)
  - Somnolence [Unknown]
  - Nausea [Unknown]
  - Sluggishness [Unknown]
  - Decreased appetite [Recovered/Resolved]
  - Dizziness [Unknown]
  - Headache [Unknown]
  - Muscular weakness [Recovered/Resolved]
  - Viral infection [Recovered/Resolved]
  - Wrong drug administered [Unknown]
  - Syncope [Recovered/Resolved]
  - Fall [Unknown]
  - Malaise [Recovered/Resolved]
  - Disorganised speech [Unknown]
